FAERS Safety Report 8623509-3 (Version None)
Quarter: 2012Q3

REPORT INFORMATION
  Report Type: 
  Country: None (occurrence: None)
  Receive Date: 20120824
  Receipt Date: 20120824
  Transmission Date: 20120928
  Serious: Yes (Life-Threatening, Hospitalization)
  Sender: FDA-Public Use
  Company Number: None

PATIENT
  Age: 67 Year
  Sex: Male

DRUGS (2)
  1. TELAPREVIR [Suspect]
     Indication: HEPATITIS C
     Dosage: 750MG, TID, PO
     Route: 048
     Dates: start: 20120202, end: 20120605
  2. RIBAVIRIN [Suspect]
     Indication: HEPATITIS C
     Dosage: 600 MG, BID, PO
     Route: 048
     Dates: start: 20120202, end: 20120605

REACTIONS (4)
  - DEEP VEIN THROMBOSIS [None]
  - ANAEMIA [None]
  - DRUG LEVEL BELOW THERAPEUTIC [None]
  - HAEMATOMA [None]
